FAERS Safety Report 4883708-3 (Version None)
Quarter: 2006Q1

REPORT INFORMATION
  Report Type: 
  Country: None (occurrence: None)
  Receive Date: 20060113
  Receipt Date: 20051229
  Transmission Date: 20060701
  Serious: Yes (Death, Other)
  Sender: FDA-Public Use
  Company Number: USA0506100157

PATIENT
  Age: 87 Year
  Sex: Female

DRUGS (2)
  1. FORTEO [Suspect]
  2. FORTEO PEN, 250MCG/ML (3ML) (FORTEO PEN 250MCG/ML (3ML)) PEN, DISPOSAB [Concomitant]

REACTIONS (3)
  - COAGULOPATHY [None]
  - HEPATIC FAILURE [None]
  - PANCREATIC CARCINOMA METASTATIC [None]
